FAERS Safety Report 10163615 (Version 2)
Quarter: 2014Q2

REPORT INFORMATION
  Report Type: Spontaneous
  Country: US (occurrence: US)
  Receive Date: 20140509
  Receipt Date: 20140527
  Transmission Date: 20141212
  Serious: Yes (Other)
  Sender: FDA-Public Use
  Company Number: US-PFIZER INC-2014124993

PATIENT
  Age: 82 Year
  Sex: Male
  Weight: 68.03 kg

DRUGS (3)
  1. SONATA [Suspect]
     Indication: INSOMNIA
     Dosage: 5 MG, TWO TIMES A WEEK
  2. LEVOTHYROXINE SODIUM [Concomitant]
     Indication: THYROID DISORDER
     Dosage: 112 UG, DAILY
  3. SIMVASTATIN [Concomitant]
     Indication: BLOOD CHOLESTEROL INCREASED
     Dosage: 5 MG, DAILY

REACTIONS (1)
  - Dermatitis exfoliative [Unknown]
